FAERS Safety Report 10512680 (Version 1)
Quarter: 2014Q4

REPORT INFORMATION
  Report Type: Report from Study
  Country: FR (occurrence: FR)
  Receive Date: 20141012
  Receipt Date: 20141012
  Transmission Date: 20150528
  Serious: Yes (Hospitalization)
  Sender: FDA-Public Use
  Company Number: FR-MYLANLABS-2014M1006712

PATIENT

DRUGS (1)
  1. WARFARIN [Suspect]
     Active Substance: WARFARIN
     Dosage: THREE TIMES A WEEK
     Route: 048

REACTIONS (3)
  - Skin necrosis [Recovered/Resolved]
  - Angiodermatitis [Recovered/Resolved]
  - Haemodialysis [None]
